FAERS Safety Report 12428996 (Version 2)
Quarter: 2016Q2

REPORT INFORMATION
  Report Type: Spontaneous
  Country: US (occurrence: US)
  Receive Date: 20160602
  Receipt Date: 20160606
  Transmission Date: 20160815
  Serious: Yes (Hospitalization, Other)
  Sender: FDA-Public Use
  Company Number: US-MDT-ADR-2016-00991

PATIENT
  Age: 26 Year
  Sex: Male

DRUGS (1)
  1. BACLOFEN. [Suspect]
     Active Substance: BACLOFEN
     Dosage: 379.7 MCG/DAY
     Route: 037

REACTIONS (4)
  - Irritability [Unknown]
  - Muscle spasticity [Unknown]
  - Pruritus [Unknown]
  - Drug withdrawal syndrome [Unknown]
